FAERS Safety Report 9696914 (Version 3)
Quarter: 2015Q3

REPORT INFORMATION
  Report Type: Spontaneous
  Country: US (occurrence: US)
  Receive Date: 20131119
  Receipt Date: 20150803
  Transmission Date: 20151125
  Serious: No
  Sender: FDA-Public Use
  Company Number: US-GILEAD-2007-0013566

PATIENT
  Age: 58 Year
  Sex: Male
  Weight: 86.64 kg

DRUGS (26)
  1. NEXIUM [Concomitant]
     Active Substance: ESOMEPRAZOLE MAGNESIUM
  2. CLONIDINE. [Concomitant]
     Active Substance: CLONIDINE
  3. CRYSTALOSE [Concomitant]
     Indication: CONSTIPATION
  4. HYOSCYAMINE. [Concomitant]
     Active Substance: HYOSCYAMINE
     Indication: MUSCLE SPASMS
  5. NITROGLYCERIN. [Concomitant]
     Active Substance: NITROGLYCERIN
  6. HYDROCODONE [Concomitant]
     Active Substance: HYDROCODONE
  7. HALOBETASOL PROPIONATE. [Concomitant]
     Active Substance: HALOBETASOL PROPIONATE
  8. LYRICA [Concomitant]
     Active Substance: PREGABALIN
  9. ZOLOFT [Concomitant]
     Active Substance: SERTRALINE HYDROCHLORIDE
  10. IBUPROFEN. [Concomitant]
     Active Substance: IBUPROFEN
  11. NORVASC [Concomitant]
     Active Substance: AMLODIPINE BESYLATE
  12. AMBIEN [Concomitant]
     Active Substance: ZOLPIDEM TARTRATE
  13. LANTUS [Concomitant]
     Active Substance: INSULIN GLARGINE
     Dosage: AT BEDTIME
  14. VALIUM [Concomitant]
     Active Substance: DIAZEPAM
  15. SOMA [Concomitant]
     Active Substance: CARISOPRODOL
  16. VENTOLIN [Concomitant]
     Active Substance: ALBUTEROL SULFATE
  17. LETAIRIS [Suspect]
     Active Substance: AMBRISENTAN
     Indication: PULMONARY ARTERIAL HYPERTENSION
     Route: 048
     Dates: start: 20070910, end: 20070925
  18. XANAX [Concomitant]
     Active Substance: ALPRAZOLAM
  19. ACTIVA [Concomitant]
  20. SPIRIVA [Concomitant]
     Active Substance: TIOTROPIUM BROMIDE MONOHYDRATE
  21. PROTOPIC [Concomitant]
     Active Substance: TACROLIMUS
  22. VYTORIN [Concomitant]
     Active Substance: EZETIMIBE\SIMVASTATIN
  23. ASPIRIN. [Concomitant]
     Active Substance: ASPIRIN
     Dosage: AT BEDTIME
  24. METHADONE [Concomitant]
     Active Substance: METHADONE HYDROCHLORIDE
  25. HUMALOG [Concomitant]
     Active Substance: INSULIN LISPRO
  26. OXYGEN. [Concomitant]
     Active Substance: OXYGEN
     Dosage: AND AT BEDTIME
     Route: 045

REACTIONS (12)
  - Vision blurred [Recovered/Resolved]
  - Chromaturia [Recovered/Resolved]
  - Pyrexia [Recovered/Resolved]
  - Decreased appetite [Recovered/Resolved]
  - Fatigue [Recovered/Resolved]
  - Abdominal pain upper [Unknown]
  - Headache [Unknown]
  - Pruritus [Unknown]
  - Malaise [Recovered/Resolved]
  - Confusional state [Unknown]
  - Constipation [Unknown]
  - Joint swelling [Unknown]

NARRATIVE: CASE EVENT DATE: 20070910
